FAERS Safety Report 7167159-7 (Version None)
Quarter: 2010Q4

REPORT INFORMATION
  Report Type: 
  Country: None (occurrence: None)
  Receive Date: 20101213
  Receipt Date: 20101213
  Transmission Date: 20110411
  Serious: Yes (Other)
  Sender: FDA-Public Use
  Company Number: None

PATIENT
  Sex: Female
  Weight: 79.3795 kg

DRUGS (2)
  1. PAXIL [Suspect]
     Indication: ANXIETY
     Dosage: DAILY 1X PO
     Route: 048
     Dates: start: 19980515, end: 19990114
  2. PAXIL [Suspect]
     Indication: DEPRESSION
     Dosage: DAILY 1X PO
     Route: 048
     Dates: start: 19980515, end: 19990114

REACTIONS (1)
  - DRUG EXPOSURE DURING PREGNANCY [None]
